FAERS Safety Report 17983742 (Version 1)
Quarter: 2020Q3

REPORT INFORMATION
  Report Type: Spontaneous
  Country: US (occurrence: US)
  Receive Date: 20200703
  Receipt Date: 20200703
  Transmission Date: 20201103
  Serious: Yes (Hospitalization)
  Sender: FDA-Public Use
  Company Number: None

PATIENT
  Age: 69 Year
  Sex: Male
  Weight: 71.21 kg

DRUGS (1)
  1. WARFARIN (WARFARIN NA (EXELAN) 3MG TAB [Suspect]
     Active Substance: WARFARIN SODIUM
     Indication: ATRIAL FIBRILLATION
     Dates: start: 20150101

REACTIONS (4)
  - Therapy interrupted [None]
  - Gastrointestinal haemorrhage [None]
  - Anaemia [None]
  - Ulcer [None]

NARRATIVE: CASE EVENT DATE: 20191104
